FAERS Safety Report 6129045-0 (Version None)
Quarter: 2009Q1

REPORT INFORMATION
  Report Type: 
  Country: None (occurrence: None)
  Receive Date: 20090324
  Receipt Date: 20090316
  Transmission Date: 20090719
  Serious: Yes (Other)
  Sender: FDA-Public Use
  Company Number: SE-JNJFOC-20090303910

PATIENT
  Age: 80 Year
  Sex: Female

DRUGS (2)
  1. HALDOL [Suspect]
     Route: 048
  2. HALDOL [Suspect]
     Indication: DRUG USE FOR UNKNOWN INDICATION
     Route: 048

REACTIONS (3)
  - DRUG ADMINISTRATION ERROR [None]
  - FATIGUE [None]
  - OVERDOSE [None]
